FAERS Safety Report 20000616 (Version 1)
Quarter: 2021Q4

REPORT INFORMATION
  Report Type: Spontaneous
  Country: US (occurrence: US)
  Receive Date: 20211026
  Receipt Date: 20211026
  Transmission Date: 20220303
  Serious: Yes (unspecified)
  Sender: FDA-Public Use
  Company Number: None

PATIENT
  Age: 74 Year
  Sex: Male
  Weight: 93.6 kg

DRUGS (1)
  1. OXALIPLATIN [Suspect]
     Active Substance: OXALIPLATIN
     Indication: Pancreatic carcinoma
     Dosage: ?          OTHER FREQUENCY:EVERY 14 DAYS;
     Route: 041
     Dates: start: 20210621

REACTIONS (2)
  - Pruritus [None]
  - Palmar erythema [None]

NARRATIVE: CASE EVENT DATE: 20211025
